FAERS Safety Report 8161251-6 (Version None)
Quarter: 2012Q1

REPORT INFORMATION
  Report Type: 
  Country: None (occurrence: None)
  Receive Date: 20120224
  Receipt Date: 20120213
  Transmission Date: 20120608
  Serious: No
  Sender: FDA-Public Use
  Company Number: US-JNJFOC-20120206578

PATIENT
  Sex: Male
  Weight: 97.07 kg

DRUGS (3)
  1. MOTRIN [Concomitant]
     Indication: INFLAMMATION
     Dosage: 2- 3 TIMES A DAY
     Route: 048
  2. FENTANYL [Suspect]
     Indication: ARTHRITIS
     Dosage: REPORTED DOSE .05 UG/HR
     Route: 062
  3. FENTANYL [Suspect]
     Indication: INTERVERTEBRAL DISC PROTRUSION
     Dosage: REPORTED DOSE .05 UG/HR
     Route: 062

REACTIONS (4)
  - DRUG DOSE OMISSION [None]
  - WRONG TECHNIQUE IN DRUG USAGE PROCESS [None]
  - PAIN [None]
  - PRODUCT ADHESION ISSUE [None]
